FAERS Safety Report 6787480-1 (Version None)
Quarter: 2010Q2

REPORT INFORMATION
  Report Type: 
  Country: None (occurrence: None)
  Receive Date: 20100623
  Receipt Date: 20080604
  Transmission Date: 20101027
  Serious: No
  Sender: FDA-Public Use
  Company Number: US-PFIZER INC-2005151973

PATIENT
  Sex: Female
  Weight: 61.23 kg

DRUGS (8)
  1. XALATAN [Suspect]
     Indication: GLAUCOMA
     Route: 047
     Dates: start: 19960101
  2. PILOCARPINE HYDROCHLORIDE [Suspect]
     Indication: GLAUCOMA
     Route: 047
     Dates: start: 19960101
  3. LEVOBUNOLOL HCL [Suspect]
     Indication: GLAUCOMA
     Route: 047
     Dates: start: 19960101
  4. ALL OTHER THERAPEUTIC PRODUCTS [Suspect]
     Indication: ILL-DEFINED DISORDER
     Route: 047
  5. ANTIHYPERTENSIVES [Suspect]
     Indication: BLOOD PRESSURE
     Route: 065
  6. FOSINOPRIL SODIUM [Concomitant]
  7. AMLODIPINE [Concomitant]
     Dates: start: 20070501
  8. GLIPIZIDE [Concomitant]
     Dates: start: 20080301

REACTIONS (4)
  - CHROMATOPSIA [None]
  - EYE BURNS [None]
  - FATIGUE [None]
  - HEADACHE [None]
